FAERS Safety Report 10481942 (Version 1)
Quarter: 2014Q3

REPORT INFORMATION
  Report Type: Spontaneous
  Country: GB (occurrence: GB)
  Receive Date: 20140929
  Receipt Date: 20140929
  Transmission Date: 20150326
  Serious: Yes (Hospitalization)
  Sender: FDA-Public Use
  Company Number: GB-TEVA-510740ISR

PATIENT
  Age: 66 Year
  Sex: Male

DRUGS (1)
  1. FOLINIC ACID [Suspect]
     Active Substance: LEUCOVORIN
     Indication: CHEMOTHERAPY
     Route: 042
     Dates: start: 20140305

REACTIONS (1)
  - Local swelling [Unknown]

NARRATIVE: CASE EVENT DATE: 20140305
